FAERS Safety Report 15904525 (Version 2)
Quarter: 2019Q1

REPORT INFORMATION
  Report Type: Spontaneous
  Country: FR (occurrence: FR)
  Receive Date: 20190204
  Receipt Date: 20190227
  Transmission Date: 20190417
  Serious: Yes (Other)
  Sender: FDA-Public Use
  Company Number: PHHY2019FR025135

PATIENT
  Age: 47 Year
  Sex: Female
  Weight: 74 kg

DRUGS (6)
  1. GINKGO BILOBA [Concomitant]
     Active Substance: GINKGO
     Indication: PRODUCT USED FOR UNKNOWN INDICATION
     Dosage: 50 DRP, QD
     Route: 048
     Dates: start: 20181114, end: 20190206
  2. PARACETAMOL [Concomitant]
     Active Substance: ACETAMINOPHEN
     Indication: PRODUCT USED FOR UNKNOWN INDICATION
     Dosage: 1 G, QD
     Route: 048
     Dates: end: 20190206
  3. GILENYA [Suspect]
     Active Substance: FINGOLIMOD HYDROCHLORIDE
     Indication: MULTIPLE SCLEROSIS
     Dosage: 1 DF, QD
     Route: 048
     Dates: start: 20181219, end: 20190123
  4. HYPERICUM PERFORATUM [Concomitant]
     Active Substance: HYPERICUM PERFORATUM
     Indication: PRODUCT USED FOR UNKNOWN INDICATION
     Dosage: 100 DRP, QD
     Route: 048
     Dates: start: 20181112, end: 20190206
  5. GILENYA [Suspect]
     Active Substance: FINGOLIMOD HYDROCHLORIDE
     Dosage: 1 DF, QD
     Route: 048
     Dates: start: 20181219, end: 20190123
  6. RIBES NIGRUM [Concomitant]
     Indication: PRODUCT USED FOR UNKNOWN INDICATION
     Dosage: 100 DRP, QD
     Route: 048
     Dates: start: 20181114, end: 20190206

REACTIONS (1)
  - Hepatocellular injury [Recovering/Resolving]

NARRATIVE: CASE EVENT DATE: 20190121
